FAERS Safety Report 10309754 (Version 1)
Quarter: 2014Q3

REPORT INFORMATION
  Report Type: Spontaneous
  Country: US (occurrence: US)
  Receive Date: 20140717
  Receipt Date: 20140717
  Transmission Date: 20150326
  Serious: No
  Sender: FDA-Public Use
  Company Number: US-BIOGENIDEC-2014BI068709

PATIENT
  Age: 67 Year
  Sex: Male
  Weight: 63 kg

DRUGS (7)
  1. AVONEX [Suspect]
     Active Substance: INTERFERON BETA-1A
     Indication: MULTIPLE SCLEROSIS
     Route: 030
     Dates: start: 2000
  2. BACLOFEN. [Concomitant]
     Active Substance: BACLOFEN
  3. AMPYRA [Concomitant]
     Active Substance: DALFAMPRIDINE
     Indication: GAIT DISTURBANCE
     Route: 048
     Dates: start: 2012
  4. FINASTERIDE. [Concomitant]
     Active Substance: FINASTERIDE
  5. CLONAZEPAM. [Concomitant]
     Active Substance: CLONAZEPAM
  6. PROVIGIL [Concomitant]
     Active Substance: MODAFINIL
  7. ALFUZOSIN HCL [Concomitant]
     Active Substance: ALFUZOSIN HYDROCHLORIDE

REACTIONS (1)
  - Secondary progressive multiple sclerosis [Not Recovered/Not Resolved]
